FAERS Safety Report 6336390-2 (Version None)
Quarter: 2009Q3

REPORT INFORMATION
  Report Type: 
  Country: None (occurrence: None)
  Receive Date: 20090828
  Receipt Date: 20090818
  Transmission Date: 20100115
  Serious: Yes (Hospitalization)
  Sender: FDA-Public Use
  Company Number: ADR13292009

PATIENT
  Sex: Female

DRUGS (2)
  1. CITALOPRAM HYDROBROMIDE [Suspect]
     Indication: POSTPARTUM DEPRESSION
     Dosage: 20MG ORAL
     Route: 048
  2. HYPERICUM [Concomitant]

REACTIONS (8)
  - ABDOMINAL DISCOMFORT [None]
  - AGITATION [None]
  - BLOOD PRESSURE FLUCTUATION [None]
  - DRUG INTERACTION [None]
  - NAUSEA [None]
  - SEROTONIN SYNDROME [None]
  - SUICIDAL IDEATION [None]
  - TACHYCARDIA [None]
